FAERS Safety Report 6786516-1 (Version None)
Quarter: 2010Q2

REPORT INFORMATION
  Report Type: 
  Country: None (occurrence: None)
  Receive Date: 20100623
  Receipt Date: 20100621
  Transmission Date: 20101027
  Serious: Yes (Other)
  Sender: FDA-Public Use
  Company Number: D0067889A

PATIENT
  Sex: Male
  Weight: 5 kg

DRUGS (7)
  1. LAMICTAL [Suspect]
     Dosage: 4MG TWICE PER DAY
     Route: 048
     Dates: start: 20100101, end: 20100601
  2. VALPROATE SODIUM [Suspect]
     Dosage: 200MG PER DAY
     Route: 048
     Dates: start: 20100501
  3. SABRIL [Suspect]
     Dosage: 250MG TWICE PER DAY
     Route: 048
     Dates: start: 20100301, end: 20100601
  4. LASIX [Concomitant]
     Dosage: 5MG THREE TIMES PER DAY
     Route: 065
  5. D-FLUORETTEN [Concomitant]
     Dosage: 1000IU PER DAY
     Route: 048
  6. LEVOCARNITINE [Concomitant]
     Dosage: 85MG THREE TIMES PER DAY
     Route: 065
  7. FERRO SANOL [Concomitant]
     Dosage: 7DROP TWICE PER DAY
     Route: 048

REACTIONS (8)
  - AGITATION [None]
  - BLOOD CREATINE PHOSPHOKINASE INCREASED [None]
  - BLOOD LACTATE DEHYDROGENASE INCREASED [None]
  - HYPERTHERMIA MALIGNANT [None]
  - NERVOUS SYSTEM DISORDER [None]
  - OFF LABEL USE [None]
  - PYREXIA [None]
  - RESTLESSNESS [None]
